FAERS Safety Report 14708044 (Version 2)
Quarter: 2019Q3

REPORT INFORMATION
  Report Type: Spontaneous
  Country: US (occurrence: US)
  Receive Date: 20180403
  Receipt Date: 20190710
  Transmission Date: 20191004
  Serious: Yes (Other)
  Sender: FDA-Public Use
  Company Number: US-PFIZER INC-2018134015

PATIENT
  Age: 63 Year
  Sex: Male
  Weight: 83.91 kg

DRUGS (2)
  1. XELJANZ XR [Suspect]
     Active Substance: TOFACITINIB CITRATE
     Indication: ARTHRITIS
     Dosage: 11 MG, 1X/DAY
     Route: 048
  2. NAPROSYN [Concomitant]
     Active Substance: NAPROXEN
     Indication: ARTHRITIS
     Dosage: UNK

REACTIONS (1)
  - Clostridium difficile infection [Recovered/Resolved]

NARRATIVE: CASE EVENT DATE: 2017
